FAERS Safety Report 19455757 (Version 1)
Quarter: 2021Q2

REPORT INFORMATION
  Report Type: Spontaneous
  Country: TR (occurrence: TR)
  Receive Date: 20210624
  Receipt Date: 20210624
  Transmission Date: 20210717
  Serious: Yes (Life-Threatening)
  Sender: FDA-Public Use
  Company Number: None

PATIENT
  Age: 73 Year
  Sex: Female
  Weight: 72 kg

DRUGS (2)
  1. FLAGYL [Suspect]
     Active Substance: METRONIDAZOLE\METRONIDAZOLE HYDROCHLORIDE
  2. AVELOX [Suspect]
     Active Substance: MOXIFLOXACIN HYDROCHLORIDE
     Indication: HELICOBACTER INFECTION
     Route: 048

REACTIONS (10)
  - Headache [None]
  - Hypertension [None]
  - Feeling abnormal [None]
  - Gait inability [None]
  - Fatigue [None]
  - Back pain [None]
  - Pain in extremity [None]
  - Restlessness [None]
  - Sleep disorder [None]
  - Fear [None]

NARRATIVE: CASE EVENT DATE: 20210315
